FAERS Safety Report 25668576 (Version 1)
Quarter: 2025Q3

REPORT INFORMATION
  Report Type: Spontaneous
  Country: US (occurrence: US)
  Receive Date: 20250812
  Receipt Date: 20250812
  Transmission Date: 20251021
  Serious: Yes (Death, Hospitalization, Other)
  Sender: STRIDES
  Company Number: US-STRIDES ARCOLAB LIMITED-2025SP010040

PATIENT
  Age: 44 Year
  Sex: Male

DRUGS (4)
  1. METHOTREXATE [Suspect]
     Active Substance: METHOTREXATE
     Indication: Cardiac sarcoidosis
     Route: 065
  2. PREDNISONE [Suspect]
     Active Substance: PREDNISONE
     Indication: Cardiac sarcoidosis
     Route: 065
  3. FOLATE SODIUM [Suspect]
     Active Substance: FOLATE SODIUM
     Indication: Cardiac sarcoidosis
     Route: 065
  4. HYDROXYCHLOROQUINE [Suspect]
     Active Substance: HYDROXYCHLOROQUINE
     Indication: Cardiac sarcoidosis
     Route: 065

REACTIONS (6)
  - Arrhythmia [Fatal]
  - Atrial fibrillation [Fatal]
  - Atrioventricular block second degree [Fatal]
  - Condition aggravated [Unknown]
  - Drug ineffective [Fatal]
  - Drug ineffective for unapproved indication [Fatal]
